FAERS Safety Report 21411353 (Version 1)
Quarter: 2022Q4

REPORT INFORMATION
  Report Type: Spontaneous
  Country: US (occurrence: US)
  Receive Date: 20221005
  Receipt Date: 20221005
  Transmission Date: 20230113
  Serious: No
  Sender: FDA-Public Use
  Company Number: US-PFIZER INC-PV202200076304

PATIENT
  Age: 73 Year
  Sex: Female

DRUGS (1)
  1. IBRANCE [Suspect]
     Active Substance: PALBOCICLIB
     Indication: Breast cancer female
     Dosage: 100 MG, CYCLIC (TAKE ON DAYS 1 TO 21 FOLLOWED BY 7 DAYS OFF. REPEAT EVERY 28 DAYS)
     Route: 048
     Dates: start: 20220128

REACTIONS (2)
  - Product dose omission issue [Unknown]
  - Red blood cell count decreased [Unknown]
